FAERS Safety Report 7235199 (Version 2)
Quarter: 2013Q2

REPORT INFORMATION
  Report Type: Spontaneous
  Country: FR (occurrence: FR)
  Receive Date: 20091231
  Receipt Date: 20130613
  Transmission Date: 20140414
  Serious: Yes (Death, Hospitalization)
  Sender: FDA-Public Use
  Company Number: FR-ASTRAZENECA-2009SE33639

PATIENT
  Age: 59 Year
  Sex: Male

DRUGS (12)
  1. PULMICORT [Suspect]
     Route: 055
     Dates: end: 20080514
  2. KALEORID [Suspect]
     Route: 048
     Dates: end: 20080514
  3. ALDACTONE [Suspect]
     Route: 048
     Dates: start: 20080422, end: 20080514
  4. COVERSYL [Suspect]
     Route: 048
     Dates: end: 20080514
  5. ALLOPURINOL [Suspect]
     Route: 048
     Dates: end: 20080514
  6. LASILIX [Suspect]
     Route: 048
     Dates: end: 20080514
  7. SPIRIVA [Suspect]
     Route: 055
     Dates: end: 20080514
  8. TAHOR [Concomitant]
     Route: 048
  9. KREDEX [Concomitant]
     Route: 048
  10. INIPOMP [Concomitant]
     Route: 048
  11. LEVOTHYROX [Concomitant]
     Route: 048
  12. PREVISCAN [Concomitant]
     Dosage: 3/4 TABLET TWO ON THREE DAYS AND 1/2 TABLET ONE ON THREE DAYS
     Route: 048

REACTIONS (3)
  - Renal failure [Fatal]
  - Cardiac failure [Fatal]
  - Hyperkalaemia [Recovered/Resolved]
